FAERS Safety Report 5842930-X (Version None)
Quarter: 2008Q3

REPORT INFORMATION
  Report Type: 
  Country: None (occurrence: None)
  Receive Date: 20080811
  Receipt Date: 20080807
  Transmission Date: 20090109
  Serious: Yes (Hospitalization)
  Sender: FDA-Public Use
  Company Number: 2008BI019532

PATIENT
  Age: 52 Year
  Sex: Male
  Weight: 80 kg

DRUGS (5)
  1. TYSABRI [Suspect]
     Indication: MULTIPLE SCLEROSIS
     Dosage: 300 UG QM IV
     Route: 042
     Dates: start: 20070501, end: 20080606
  2. PREDNISOLONE [Concomitant]
  3. AVONEX [Concomitant]
  4. REBIF [Concomitant]
  5. IMUREK [Concomitant]

REACTIONS (10)
  - AGGRESSION [None]
  - BACK PAIN [None]
  - CEREBROVASCULAR ACCIDENT [None]
  - DEPRESSION [None]
  - GENERAL PHYSICAL HEALTH DETERIORATION [None]
  - JC VIRUS INFECTION [None]
  - MOOD ALTERED [None]
  - NEUTROPHILIA [None]
  - PERSONALITY CHANGE [None]
  - PROGRESSIVE MULTIFOCAL LEUKOENCEPHALOPATHY [None]
